FAERS Safety Report 5278130-4 (Version None)
Quarter: 2007Q1

REPORT INFORMATION
  Report Type: 
  Country: None (occurrence: None)
  Receive Date: 20061213
  Receipt Date: 20040914
  Transmission Date: 20070707
  Serious: Yes (Hospitalization)
  Sender: FDA-Public Use
  Company Number: 2004UW19263

PATIENT
  Age: 22 Year
  Sex: Male
  Weight: 72.5755 kg

DRUGS (6)
  1. SEROQUEL [Suspect]
     Indication: SLEEP DISORDER
     Dosage: 150 MG QD PO
     Route: 048
     Dates: start: 20040611, end: 20040801
  2. SEROQUEL [Suspect]
     Indication: SLEEP DISORDER
     Dates: start: 20040821
  3. REMERON [Concomitant]
  4. AMBIEN [Concomitant]
  5. PERCOCET [Concomitant]
  6. LEXAPRO [Concomitant]

REACTIONS (2)
  - IRRITABILITY [None]
  - SUICIDE ATTEMPT [None]
